FAERS Safety Report 10953868 (Version 2)
Quarter: 2015Q1

REPORT INFORMATION
  Report Type: Spontaneous
  Country: US (occurrence: US)
  Receive Date: 20150325
  Receipt Date: 20150331
  Transmission Date: 20150721
  Serious: No
  Sender: FDA-Public Use
  Company Number: US-009507513-1503USA000163

PATIENT
  Sex: Female

DRUGS (4)
  1. PEGINTRON [Suspect]
     Active Substance: PEGINTERFERON ALFA-2B
     Dosage: STRENGTH WAS RASIED TO 3.5/ 1 EVERY WEEK
  2. PEGINTRON [Suspect]
     Active Substance: PEGINTERFERON ALFA-2B
     Indication: SCAR
     Dosage: STRENGTH OF FIRST DOSE AS 3/ 1 EVERY WEEK
     Dates: start: 201409
  3. PEGINTRON [Suspect]
     Active Substance: PEGINTERFERON ALFA-2B
     Dosage: TOLD HER TO GO AGAIN AT THE FIRST OF THE YEAR
     Dates: start: 201501, end: 201502
  4. PEGINTRON [Suspect]
     Active Substance: PEGINTERFERON ALFA-2B
     Dosage: STRENGTH WAS THEN 3 AGAIN/ 1 EVERY WEEK
     Dates: end: 2014

REACTIONS (9)
  - Asthenia [Unknown]
  - Asthenia [Recovering/Resolving]
  - Malaise [Unknown]
  - Paraesthesia [Unknown]
  - Paraesthesia [Recovering/Resolving]
  - Influenza like illness [Recovering/Resolving]
  - Pain [Unknown]
  - Influenza like illness [Unknown]
  - Pain [Recovering/Resolving]

NARRATIVE: CASE EVENT DATE: 2014
